FAERS Safety Report 7732131-2 (Version None)
Quarter: 2011Q3

REPORT INFORMATION
  Report Type: 
  Country: None (occurrence: None)
  Receive Date: 20110906
  Receipt Date: 20110812
  Transmission Date: 20111222
  Serious: No
  Sender: FDA-Public Use
  Company Number: US-AMGEN-USASP2011041167

PATIENT
  Age: 53 Year
  Sex: Female

DRUGS (3)
  1. PROLIA [Suspect]
     Indication: OSTEOPOROSIS POSTMENOPAUSAL
     Dosage: 60 MG, Q6MO
     Dates: start: 20110101
  2. PROLIA [Suspect]
     Dosage: 60 MG, Q6MO
     Dates: start: 20110601
  3. FLUOXETINE [Concomitant]
     Dosage: UNK

REACTIONS (4)
  - RIB FRACTURE [None]
  - ARTHRITIS [None]
  - MUSCULOSKELETAL CHEST PAIN [None]
  - ARTHROPATHY [None]
